FAERS Safety Report 20951333 (Version 1)
Quarter: 2022Q2

REPORT INFORMATION
  Report Type: Spontaneous
  Country: US (occurrence: None)
  Receive Date: 20220610
  Receipt Date: 20220610
  Transmission Date: 20220720
  Serious: Yes (Life-Threatening, Hospitalization)
  Sender: FDA-Public Use
  Company Number: None

PATIENT
  Age: 81 Year
  Sex: Female
  Weight: 73.1 kg

DRUGS (1)
  1. GADOTERIDOL [Suspect]
     Active Substance: GADOTERIDOL
     Indication: Scan with contrast
     Dosage: OTHER FREQUENCY : ONCE;?
     Route: 042
     Dates: start: 20220103, end: 20220103

REACTIONS (7)
  - Unresponsive to stimuli [None]
  - Respiratory rate decreased [None]
  - Hypotension [None]
  - Blood pressure systolic decreased [None]
  - Oxygen saturation decreased [None]
  - Contrast media reaction [None]
  - Colitis ischaemic [None]

NARRATIVE: CASE EVENT DATE: 20220103
